FAERS Safety Report 4860824-3 (Version None)
Quarter: 2005Q4

REPORT INFORMATION
  Report Type: 
  Country: None (occurrence: None)
  Receive Date: 20051216
  Receipt Date: 20051205
  Transmission Date: 20060501
  Serious: Yes (Other)
  Sender: FDA-Public Use
  Company Number: 163-20785-05120196

PATIENT
  Age: 65 Year
  Sex: Male

DRUGS (2)
  1. THALOMID [Suspect]
     Indication: MULTIPLE MYELOMA
     Dosage: QD, ORAL
     Route: 048
  2. ZOLEDRONIC ACID (ZOLEDRONIC ACID) (INJECTION FOR INFUSION) [Suspect]
     Indication: BONE PAIN
     Dosage: 4 MG, MONTHLY, INTRAVENOUS
     Route: 042

REACTIONS (5)
  - MYELOMA RECURRENCE [None]
  - OSTEONECROSIS [None]
  - TOOTH ABSCESS [None]
  - TOOTH EXTRACTION [None]
  - TOOTHACHE [None]
